FAERS Safety Report 14985057 (Version 1)
Quarter: 2018Q2

REPORT INFORMATION
  Report Type: Spontaneous
  Country: CN (occurrence: CN)
  Receive Date: 20180607
  Receipt Date: 20180607
  Transmission Date: 20180711
  Serious: Yes (Other)
  Sender: FDA-Public Use
  Company Number: CN-FRESENIUS KABI-FK201806524

PATIENT
  Age: 67 Year
  Sex: Female

DRUGS (7)
  1. PROPOFOL LCT/MCT 10 MG/ML FRESENIUS [Suspect]
     Active Substance: PROPOFOL
     Indication: ANAESTHESIA
     Route: 042
     Dates: start: 20180208, end: 20180308
  2. KAIFEN [Concomitant]
     Indication: ANAESTHESIA
     Route: 042
     Dates: start: 20180308, end: 20180308
  3. CISATRACURIUM BESILATE [Concomitant]
     Active Substance: CISATRACURIUM BESYLATE
     Indication: ANAESTHESIA
     Route: 042
     Dates: start: 20180308, end: 20180308
  4. TROPISETRON HYDROCLORIDE [Concomitant]
     Indication: ANAESTHESIA
     Route: 042
     Dates: start: 20180308, end: 20180308
  5. SEVOFLURANE. [Concomitant]
     Active Substance: SEVOFLURANE
     Indication: ANAESTHESIA
     Route: 050
     Dates: start: 20180308, end: 20180308
  6. FUERLI [Concomitant]
     Indication: ANAESTHESIA
     Route: 042
     Dates: start: 20180308, end: 20180308
  7. RUIJIE [Concomitant]
     Indication: ANAESTHESIA
     Route: 042
     Dates: start: 20180308, end: 20180308

REACTIONS (1)
  - Rash vesicular [Recovered/Resolved]

NARRATIVE: CASE EVENT DATE: 20180308
